FAERS Safety Report 9410769 (Version 1)
Quarter: 2013Q3

REPORT INFORMATION
  Report Type: Spontaneous
  Country: US (occurrence: US)
  Receive Date: 20130719
  Receipt Date: 20130719
  Transmission Date: 20140515
  Serious: Yes (Hospitalization)
  Sender: FDA-Public Use
  Company Number: US-ELI_LILLY_AND_COMPANY-US201307004781

PATIENT
  Age: 65 Year
  Sex: Male
  Weight: 136.5 kg

DRUGS (1)
  1. HUMALOG LISPRO [Suspect]
     Dosage: UNK
     Route: 058

REACTIONS (7)
  - Fall [Unknown]
  - Wound [Unknown]
  - Contusion [Unknown]
  - Localised infection [Unknown]
  - Balance disorder [Unknown]
  - Feeling abnormal [Unknown]
  - Blood glucose increased [Unknown]
